FAERS Safety Report 18458551 (Version 2)
Quarter: 2020Q4

REPORT INFORMATION
  Report Type: Report from Study
  Country: CA (occurrence: CA)
  Receive Date: 20201103
  Receipt Date: 20201125
  Transmission Date: 20210114
  Serious: Yes (Other)
  Sender: FDA-Public Use
  Company Number: CA-JNJFOC-20201046660

PATIENT
  Sex: Female

DRUGS (1)
  1. SIMPONI [Suspect]
     Active Substance: GOLIMUMAB
     Indication: ANKYLOSING SPONDYLITIS
     Route: 058

REACTIONS (6)
  - Abdominal pain upper [Unknown]
  - Musculoskeletal chest pain [Unknown]
  - Asthenia [Unknown]
  - Arthralgia [Unknown]
  - Rhinorrhoea [Unknown]
  - Lower respiratory tract infection [Not Recovered/Not Resolved]
